FAERS Safety Report 5159205-7 (Version None)
Quarter: 2006Q4

REPORT INFORMATION
  Report Type: 
  Country: None (occurrence: None)
  Receive Date: 20061120
  Receipt Date: 20061110
  Transmission Date: 20070319
  Serious: Yes (Life-Threatening)
  Sender: FDA-Public Use
  Company Number: 430010E06ITA

PATIENT
  Age: 66 Year
  Sex: Female

DRUGS (4)
  1. NOVANTRONE [Suspect]
     Dates: start: 20060708, end: 20060903
  2. CYTARABINE [Suspect]
     Dosage: 160 MG
     Dates: start: 20060830, end: 20060906
  3. ETOPOSIDE [Suspect]
     Dosage: 160 MG
     Dates: start: 20060830, end: 20060901
  4. POTASSIUM CHLORIDE [Concomitant]

REACTIONS (3)
  - CARDIAC ARREST [None]
  - HYPOKALAEMIA [None]
  - VENTRICULAR FIBRILLATION [None]
